FAERS Safety Report 21247845 (Version 2)
Quarter: 2022Q3

REPORT INFORMATION
  Report Type: Spontaneous
  Country: AR (occurrence: AR)
  Receive Date: 20220824
  Receipt Date: 20220829
  Transmission Date: 20221027
  Serious: Yes (Other)
  Sender: FDA-Public Use
  Company Number: AR-PFIZER INC-PV202200047917

PATIENT
  Age: 73 Year
  Sex: Female

DRUGS (1)
  1. IBRANCE [Suspect]
     Active Substance: PALBOCICLIB
     Dosage: UNK

REACTIONS (13)
  - Hernial eventration [Unknown]
  - Cerebral small vessel ischaemic disease [Unknown]
  - Carcinoembryonic antigen increased [Unknown]
  - Red blood cell count decreased [Unknown]
  - Anaemia [Unknown]
  - Macrocytosis [Unknown]
  - Pleural thickening [Unknown]
  - Granuloma [Unknown]
  - Intra-abdominal calcification [Unknown]
  - Cyst [Unknown]
  - Bilirubin conjugated increased [Unknown]
  - Haematocrit decreased [Unknown]
  - Mean cell volume increased [Unknown]

NARRATIVE: CASE EVENT DATE: 20210304
